FAERS Safety Report 5512559-1 (Version None)
Quarter: 2007Q4

REPORT INFORMATION
  Report Type: 
  Country: None (occurrence: None)
  Receive Date: 20071112
  Receipt Date: 20071010
  Transmission Date: 20080405
  Serious: No
  Sender: FDA-Public Use
  Company Number: A0686937A

PATIENT
  Age: 53 Year
  Sex: Male

DRUGS (8)
  1. AVANDAMET [Suspect]
     Dosage: 1TAB TWICE PER DAY
     Route: 048
     Dates: start: 20070401
  2. COREG [Suspect]
     Indication: HYPERTENSION
     Dosage: 12.5MG TWICE PER DAY
     Route: 048
     Dates: start: 20070801
  3. ASPIRIN [Concomitant]
  4. OMACOR [Concomitant]
  5. LISINOPRIL [Concomitant]
  6. PREVACID [Concomitant]
  7. VYTORIN [Concomitant]
  8. NAPROSYN [Concomitant]

REACTIONS (1)
  - ERECTILE DYSFUNCTION [None]
